FAERS Safety Report 4836439-X (Version None)
Quarter: 2005Q4

REPORT INFORMATION
  Report Type: 
  Country: None (occurrence: None)
  Receive Date: 20051118
  Receipt Date: 20051110
  Transmission Date: 20060501
  Serious: Yes (Death, Hospitalization)
  Sender: FDA-Public Use
  Company Number: HQWYE500910NOV05

PATIENT
  Age: 85 Year
  Sex: Male

DRUGS (8)
  1. ANCARON (AMIODARONE, TABLET) [Suspect]
     Indication: VENTRICULAR TACHYCARDIA
     Dosage: 200 MG 1X PER 1 DAY
     Route: 048
     Dates: start: 20020325, end: 20050917
  2. LASIX [Concomitant]
  3. ALLOPURINOL [Concomitant]
  4. CARVEDILOL [Concomitant]
  5. HALCION [Concomitant]
  6. ISOSORBIDE DINITRATE [Concomitant]
  7. MINOCIN [Concomitant]
  8. LEVOFLOXACIN [Concomitant]

REACTIONS (6)
  - CARDIAC FAILURE [None]
  - HEPATIC CIRRHOSIS [None]
  - HEPATIC FAILURE [None]
  - PLEURAL EFFUSION [None]
  - RENAL FAILURE [None]
  - RESPIRATORY FAILURE [None]
